FAERS Safety Report 9530974 (Version 1)
Quarter: 2013Q3

REPORT INFORMATION
  Report Type: Spontaneous
  Country: US (occurrence: None)
  Receive Date: 20130916
  Receipt Date: 20130916
  Transmission Date: 20140515
  Serious: No
  Sender: FDA-Public Use
  Company Number: None

PATIENT
  Sex: 0

DRUGS (2)
  1. TEMOZOLOMIDE [Suspect]
     Route: 048
     Dates: start: 20130910, end: 20130912
  2. TEMOZOLOMIDE [Suspect]
     Route: 048
     Dates: start: 20130910, end: 20130912

REACTIONS (2)
  - Nausea [None]
  - Vomiting [None]
